FAERS Safety Report 20018829 (Version 4)
Quarter: 2022Q2

REPORT INFORMATION
  Report Type: Report from Study
  Country: US (occurrence: US)
  Receive Date: 20211101
  Receipt Date: 20220426
  Transmission Date: 20220721
  Serious: Yes (Hospitalization)
  Sender: FDA-Public Use
  Company Number: US-BIOVITRUM-2021US9564

PATIENT
  Age: 25 Year
  Sex: Male

DRUGS (2)
  1. KINERET [Suspect]
     Active Substance: ANAKINRA
     Indication: Connective tissue disorder
     Route: 058
     Dates: start: 20200630
  2. KINERET [Suspect]
     Active Substance: ANAKINRA
     Indication: Autoinflammatory disease

REACTIONS (10)
  - Tooth infection [Unknown]
  - Post-acute COVID-19 syndrome [Unknown]
  - Crying [Unknown]
  - Discomfort [Unknown]
  - Dizziness [Unknown]
  - Weight decreased [Recovered/Resolved]
  - Inflammation [Unknown]
  - Diarrhoea [Unknown]
  - Urinary tract infection [Unknown]
  - Off label use [Unknown]

NARRATIVE: CASE EVENT DATE: 20200630
